FAERS Safety Report 12692503 (Version 1)
Quarter: 2016Q3

REPORT INFORMATION
  Report Type: Spontaneous
  Country: US (occurrence: US)
  Receive Date: 20160829
  Receipt Date: 20160829
  Transmission Date: 20161109
  Serious: No
  Sender: FDA-Public Use
  Company Number: US-AMGEN-USASP2016104616

PATIENT
  Sex: Male

DRUGS (1)
  1. ENBREL [Suspect]
     Active Substance: ETANERCEPT
     Indication: PSORIATIC ARTHROPATHY
     Dosage: UNK UNK, QWK
     Route: 065
     Dates: start: 2016

REACTIONS (6)
  - Pruritus [Unknown]
  - Excoriation [Unknown]
  - White blood cell count increased [Unknown]
  - Rash maculo-papular [Unknown]
  - Pyrexia [Unknown]
  - Erythema [Unknown]

NARRATIVE: CASE EVENT DATE: 2016
